FAERS Safety Report 10102115 (Version 2)
Quarter: 2014Q2

REPORT INFORMATION
  Report Type: Spontaneous
  Country: US (occurrence: US)
  Receive Date: 20140424
  Receipt Date: 20140501
  Transmission Date: 20141212
  Serious: Yes (Death, Hospitalization)
  Sender: FDA-Public Use
  Company Number: US-B.I. PHARMACEUTICALS,INC./RIDGEFIELD-2014-BI-18209BP

PATIENT
  Age: 77 Year
  Sex: Female

DRUGS (11)
  1. SPIRIVA [Suspect]
     Indication: CHRONIC OBSTRUCTIVE PULMONARY DISEASE
     Dosage: 18 MCG
     Route: 055
     Dates: start: 2009, end: 201304
  2. TYLENOL [Concomitant]
     Route: 065
  3. OXYGEN THERAPY [Concomitant]
     Route: 065
  4. NORVASC [Concomitant]
     Route: 065
  5. PRAVACHOL [Concomitant]
     Route: 065
  6. ADVAIR [Concomitant]
     Route: 065
  7. SYMBICORT [Concomitant]
     Route: 065
  8. LASIX [Concomitant]
     Route: 065
  9. NITROGLYCERIN PATCH [Concomitant]
     Dosage: FORMULATION: PATCH
     Route: 065
  10. ALBUTEROL [Concomitant]
     Route: 065
  11. METOPROLOL [Concomitant]
     Route: 065

REACTIONS (1)
  - Leukaemia [Fatal]
